FAERS Safety Report 20281587 (Version 1)
Quarter: 2022Q1

REPORT INFORMATION
  Report Type: Spontaneous
  Country: US (occurrence: None)
  Receive Date: 20220101
  Receipt Date: 20220101
  Transmission Date: 20220423
  Serious: Yes (Death)
  Sender: FDA-Public Use
  Company Number: None

PATIENT
  Age: 75 Year
  Sex: Male
  Weight: 130.1 kg

DRUGS (1)
  1. TOCILIZUMAB [Suspect]
     Active Substance: TOCILIZUMAB
     Indication: COVID-19
     Dosage: FREQUENCY : ONCE;?
     Route: 040
     Dates: start: 20211213, end: 20211213

REACTIONS (24)
  - Mental status changes [None]
  - Hypophagia [None]
  - Intentional dose omission [None]
  - Laboratory test abnormal [None]
  - Confusional state [None]
  - Agitation [None]
  - Hypoxia [None]
  - Hypernatraemia [None]
  - Deep vein thrombosis [None]
  - Deep vein thrombosis [None]
  - Haemoptysis [None]
  - Bacterial test positive [None]
  - Leukocytosis [None]
  - Bronchoalveolar lavage abnormal [None]
  - Staphylococcus test negative [None]
  - Streptococcus test positive [None]
  - Corynebacterium test positive [None]
  - Swallow study abnormal [None]
  - Agitation [None]
  - Insomnia [None]
  - Respiratory distress [None]
  - Cardiac arrest [None]
  - Resuscitation [None]
  - Septic shock [None]

NARRATIVE: CASE EVENT DATE: 20211230
